FAERS Safety Report 13959113 (Version 1)
Quarter: 2017Q3

REPORT INFORMATION
  Report Type: Spontaneous
  Country: US (occurrence: US)
  Receive Date: 20170912
  Receipt Date: 20170912
  Transmission Date: 20171128
  Serious: No
  Sender: FDA-Public Use
  Company Number: US-JNJFOC-20170826259

PATIENT
  Age: 80 Year
  Sex: Female
  Weight: 68.95 kg

DRUGS (4)
  1. ZYRTEC [Suspect]
     Active Substance: CETIRIZINE HYDROCHLORIDE
     Indication: MULTIPLE ALLERGIES
     Dosage: TAKEN IN THE MORNING
     Route: 048
     Dates: start: 20170828, end: 20170828
  2. ZYRTEC [Suspect]
     Active Substance: CETIRIZINE HYDROCHLORIDE
     Indication: DRY THROAT
     Dosage: TOOK TWO 10MG TABLETS AT LUNCH WITHIN A SIX HOUR PERIOD
     Route: 048
     Dates: start: 20170828
  3. ZYRTEC [Suspect]
     Active Substance: CETIRIZINE HYDROCHLORIDE
     Indication: DRY THROAT
     Dosage: TAKEN IN THE MORNING
     Route: 048
     Dates: start: 20170828, end: 20170828
  4. ZYRTEC [Suspect]
     Active Substance: CETIRIZINE HYDROCHLORIDE
     Indication: MULTIPLE ALLERGIES
     Dosage: TOOK TWO 10MG TABLETS AT LUNCH WITHIN A SIX HOUR PERIOD
     Route: 048
     Dates: start: 20170828

REACTIONS (5)
  - Overdose [Unknown]
  - Product use in unapproved indication [Unknown]
  - Drug administration error [Unknown]
  - Therapeutic response unexpected [Unknown]
  - Product label issue [Unknown]

NARRATIVE: CASE EVENT DATE: 20170828
